FAERS Safety Report 12239337 (Version 1)
Quarter: 2016Q2

REPORT INFORMATION
  Report Type: Spontaneous
  Country: US (occurrence: US)
  Receive Date: 20160405
  Receipt Date: 20160405
  Transmission Date: 20160815
  Serious: Yes (Other)
  Sender: FDA-Public Use
  Company Number: US-BAYER-2016-064211

PATIENT
  Sex: Male
  Weight: 104.31 kg

DRUGS (1)
  1. AFRIN ORIGINAL [Suspect]
     Active Substance: OXYMETAZOLINE HYDROCHLORIDE
     Indication: NASAL CONGESTION
     Dosage: 1 DF, QD
     Route: 045
     Dates: start: 2006

REACTIONS (2)
  - Product use issue [None]
  - Drug dependence [None]
